FAERS Safety Report 5351185-4 (Version None)
Quarter: 2007Q2

REPORT INFORMATION
  Report Type: 
  Country: None (occurrence: None)
  Receive Date: 20070608
  Receipt Date: 20070530
  Transmission Date: 20071010
  Serious: Yes (Death)
  Sender: FDA-Public Use
  Company Number: US-PFIZER INC-2007042555

PATIENT
  Age: 55 Year
  Sex: Male

DRUGS (1)
  1. SUTENT [Suspect]
     Indication: PROSTATE CANCER
     Route: 048
     Dates: start: 20070420, end: 20070527

REACTIONS (1)
  - HAEMORRHAGIC STROKE [None]
